FAERS Safety Report 6006383-3 (Version None)
Quarter: 2008Q4

REPORT INFORMATION
  Report Type: 
  Country: None (occurrence: None)
  Receive Date: 20081217
  Receipt Date: 20081110
  Transmission Date: 20090506
  Serious: No
  Sender: FDA-Public Use
  Company Number: US-BAYER-200814353BCC

PATIENT
  Age: 89 Year
  Sex: Female
  Weight: 63 kg

DRUGS (6)
  1. ALEVE [Suspect]
     Indication: BACK PAIN
     Dosage: AS USED: 660 MG  UNIT DOSE: 220 MG
     Route: 048
     Dates: start: 20081108, end: 20081108
  2. ALEVE [Suspect]
     Dosage: TOTAL DAILY DOSE: 220 MG  UNIT DOSE: 220 MG
     Route: 048
     Dates: start: 20081109
  3. FOSAMAX [Concomitant]
  4. SULAR [Concomitant]
  5. ASPIRIN [Concomitant]
  6. BENGAY [Concomitant]

REACTIONS (1)
  - BACK PAIN [None]
